FAERS Safety Report 6968148-5 (Version None)
Quarter: 2010Q3

REPORT INFORMATION
  Report Type: 
  Country: None (occurrence: None)
  Receive Date: 20100907
  Receipt Date: 20100903
  Transmission Date: 20110219
  Serious: Yes (Other)
  Sender: FDA-Public Use
  Company Number: D0068762A

PATIENT
  Age: 47 Year
  Sex: Female

DRUGS (1)
  1. LAMICTAL [Suspect]
     Indication: CONVULSION
     Route: 048

REACTIONS (2)
  - AURA [None]
  - CONVULSION [None]
